FAERS Safety Report 4339827-3 (Version None)
Quarter: 2004Q2

REPORT INFORMATION
  Report Type: 
  Country: None (occurrence: None)
  Receive Date: 20040415
  Receipt Date: 20040415
  Transmission Date: 20050107
  Serious: Yes (Life-Threatening)
  Sender: FDA-Public Use
  Company Number: None

PATIENT
  Age: 76 Year
  Sex: Male
  Weight: 76 kg

DRUGS (2)
  1. PAROXETINE HCL [Suspect]
     Indication: DEPRESSION
     Dosage: 40 MG PO QD
     Route: 048
  2. IMIPRAMINE [Suspect]
     Indication: SOMNOLENCE
     Dosage: 50 MG PO Q HS
     Route: 048

REACTIONS (4)
  - CLONIC CONVULSION [None]
  - HYPERREFLEXIA [None]
  - HYPERTHERMIA [None]
  - TRISMUS [None]
